FAERS Safety Report 8125717-7 (Version None)
Quarter: 2012Q1

REPORT INFORMATION
  Report Type: 
  Country: None (occurrence: None)
  Receive Date: 20120209
  Receipt Date: 20120126
  Transmission Date: 20120608
  Serious: Yes (Other)
  Sender: FDA-Public Use
  Company Number: CHPA2012US002233

PATIENT
  Age: 56 Year
  Sex: Female

DRUGS (3)
  1. EXCEDRIN MIGRAINE CAPLETS [Suspect]
     Indication: MIGRAINE
     Dosage: 1 OR 1.5 OR 2 DF, QD
     Route: 048
  2. MAALOX MAX MAXIMUM STRENGTH [Concomitant]
     Indication: ULCER
     Dosage: 3 TSP OR 4.5 TSP, 2 OR 4 TIMES A DAY
     Route: 048
  3. NODOZ [Concomitant]
     Indication: SOMNOLENCE
     Dosage: 0.5 DF, QD
     Route: 048

REACTIONS (5)
  - WRONG TECHNIQUE IN DRUG USAGE PROCESS [None]
  - UNDERDOSE [None]
  - EXPIRED DRUG ADMINISTERED [None]
  - COELIAC DISEASE [None]
  - INAPPROPRIATE SCHEDULE OF DRUG ADMINISTRATION [None]
